FAERS Safety Report 4842463-3 (Version None)
Quarter: 2005Q4

REPORT INFORMATION
  Report Type: 
  Country: None (occurrence: None)
  Receive Date: 20051129
  Receipt Date: 20051111
  Transmission Date: 20060501
  Serious: Yes (Other)
  Sender: FDA-Public Use
  Company Number: US200511000670

PATIENT
  Sex: Female

DRUGS (4)
  1. FORTEO (TERIPARATIDE) PEN, DISPOSABLE [Suspect]
     Dates: start: 20041001
  2. NEXIUM [Suspect]
  3. FORTEO PEN (250MCG/ML) (FORTEO PEN 250MCG/ML (3ML) ) [Concomitant]
  4. SYNTHROID [Concomitant]

REACTIONS (2)
  - BLOOD ALKALINE PHOSPHATASE INCREASED [None]
  - OSTEITIS DEFORMANS [None]
